FAERS Safety Report 4393853-7 (Version None)
Quarter: 2004Q3

REPORT INFORMATION
  Report Type: 
  Country: None (occurrence: None)
  Receive Date: 20040702
  Receipt Date: 20040624
  Transmission Date: 20050211
  Serious: No
  Sender: FDA-Public Use
  Company Number: 2004UW07316

PATIENT
  Age: 68 Year
  Sex: Female

DRUGS (4)
  1. ARIMIDEX [Suspect]
     Indication: BREAST CANCER STAGE IV
     Dosage: 1 MG PO
     Route: 048
  2. ARIMIDEX [Suspect]
     Indication: METASTASES TO BONE
     Dosage: 1 MG PO
     Route: 048
  3. AREDIA [Concomitant]
  4. ASPIRIN [Concomitant]

REACTIONS (1)
  - SUBDURAL HAEMATOMA [None]
